FAERS Safety Report 12542496 (Version 2)
Quarter: 2016Q3

REPORT INFORMATION
  Report Type: Spontaneous
  Country: NZ (occurrence: NZ)
  Receive Date: 20160709
  Receipt Date: 20160709
  Transmission Date: 20161109
  Serious: Yes (Hospitalization, Other)
  Sender: FDA-Public Use
  Company Number: NZ-CIPLA LTD.-2014NZ00061

PATIENT

DRUGS (3)
  1. QUETIAPINE. [Suspect]
     Active Substance: QUETIAPINE
     Dosage: 5800 MG, UNK
     Route: 065
  2. ALCOHOL. [Suspect]
     Active Substance: ALCOHOL
     Dosage: TWO BOTTLES
     Route: 065
  3. CITALOPRAM [Suspect]
     Active Substance: CITALOPRAM HYDROBROMIDE
     Dosage: 240 MG, UNK
     Route: 065

REACTIONS (14)
  - Haemorrhage [Unknown]
  - Electrocardiogram QRS complex prolonged [Unknown]
  - Unresponsive to stimuli [Recovered/Resolved]
  - Respiration abnormal [Recovered/Resolved]
  - Pneumonia aspiration [Recovered/Resolved]
  - Heart rate decreased [Recovered/Resolved]
  - Ventricular extrasystoles [Unknown]
  - Suicide attempt [Unknown]
  - Hypoaesthesia [Not Recovered/Not Resolved]
  - Intentional overdose [Recovered/Resolved]
  - Electrocardiogram QT prolonged [Unknown]
  - Blood pressure decreased [Recovered/Resolved]
  - Electrocardiogram J wave [Unknown]
  - Hypothermia [Recovered/Resolved]
